FAERS Safety Report 23830340 (Version 2)
Quarter: 2024Q2

REPORT INFORMATION
  Report Type: Spontaneous
  Country: US (occurrence: US)
  Receive Date: 20240508
  Receipt Date: 20240527
  Transmission Date: 20240716
  Serious: Yes (Death, Hospitalization)
  Sender: FDA-Public Use
  Company Number: US-TEVA-VS-3192962

PATIENT
  Age: 58 Year
  Sex: Female

DRUGS (1)
  1. METHYLPREDNISOLONE [Suspect]
     Active Substance: METHYLPREDNISOLONE
     Indication: Immune-mediated myocarditis
     Route: 065

REACTIONS (5)
  - Drug ineffective [Fatal]
  - Vasoplegia syndrome [Unknown]
  - Nervous system disorder [Unknown]
  - Acute kidney injury [Unknown]
  - Acute hepatic failure [Unknown]
